FAERS Safety Report 6407072-3 (Version None)
Quarter: 2009Q4

REPORT INFORMATION
  Report Type: 
  Country: None (occurrence: None)
  Receive Date: 20091020
  Receipt Date: 20091009
  Transmission Date: 20100525
  Serious: Yes (Other)
  Sender: FDA-Public Use
  Company Number: US-BAXTER-2009BH015457

PATIENT
  Age: 65 Year
  Sex: Male

DRUGS (3)
  1. GAMMAGARD LIQUID [Suspect]
     Indication: IMMUNODEFICIENCY COMMON VARIABLE
     Route: 042
     Dates: start: 20090801
  2. POLYGAM S/D [Suspect]
     Indication: IMMUNODEFICIENCY COMMON VARIABLE
     Route: 042
     Dates: start: 20030501, end: 20040101
  3. POLYGAM S/D [Suspect]
     Route: 042
     Dates: start: 20040101

REACTIONS (2)
  - ASPARTATE AMINOTRANSFERASE INCREASED [None]
  - HEPATITIS C POSITIVE [None]
